FAERS Safety Report 17893967 (Version 1)
Quarter: 2020Q2

REPORT INFORMATION
  Report Type: Spontaneous
  Country: US (occurrence: US)
  Receive Date: 20200615
  Receipt Date: 20200615
  Transmission Date: 20200714
  Serious: Yes (Other)
  Sender: FDA-Public Use
  Company Number: US-STRIDES ARCOLAB LIMITED-2019SP007152

PATIENT
  Age: 16 Year
  Sex: Female

DRUGS (16)
  1. ZOLPIDEM [Suspect]
     Active Substance: ZOLPIDEM TARTRATE
     Indication: ENCEPHALITIS AUTOIMMUNE
     Dosage: 40 MG/DAY
     Route: 065
  2. LORAZEPAM. [Suspect]
     Active Substance: LORAZEPAM
     Indication: ENCEPHALITIS AUTOIMMUNE
     Dosage: 18 MG/DAY
     Route: 065
  3. RITUXIMAB. [Suspect]
     Active Substance: RITUXIMAB
     Indication: ENCEPHALITIS AUTOIMMUNE
     Dosage: 1000 MG BI WEEKLY FOR TWO DOSES
     Route: 065
  4. DANTROLENE. [Concomitant]
     Active Substance: DANTROLENE SODIUM
     Indication: NEUROLEPTIC MALIGNANT SYNDROME
     Dosage: UNK
     Route: 065
  5. LORAZEPAM. [Suspect]
     Active Substance: LORAZEPAM
     Indication: MALIGNANT CATATONIA
  6. HALOPERIDOL. [Concomitant]
     Active Substance: HALOPERIDOL
     Indication: AGITATION
     Dosage: UNK
     Route: 065
  7. ZOLPIDEM [Suspect]
     Active Substance: ZOLPIDEM TARTRATE
     Indication: MALIGNANT CATATONIA
  8. IMMUNE GLOBULIN (IMMUNOGLOBULINS NOS) [Suspect]
     Active Substance: IMMUNE GLOBULIN NOS
     Indication: MALIGNANT CATATONIA
     Dosage: 70 G MONTHLY FOR THREE MORE DOSES
     Route: 042
  9. METHYLPREDNISOLONE. [Suspect]
     Active Substance: METHYLPREDNISOLONE
     Indication: MALIGNANT CATATONIA
     Dosage: 30MG EVERY 12H
     Route: 065
  10. RISPERIDONE. [Concomitant]
     Active Substance: RISPERIDONE
     Indication: AGITATION
     Dosage: UNK
     Route: 065
  11. LEVETIRACETAM. [Concomitant]
     Active Substance: LEVETIRACETAM
     Indication: GENERALISED TONIC-CLONIC SEIZURE
     Dosage: UNK
     Route: 065
  12. LORAZEPAM. [Suspect]
     Active Substance: LORAZEPAM
     Indication: NEUROLEPTIC MALIGNANT SYNDROME
     Dosage: UNK
     Route: 065
  13. IMMUNE GLOBULIN (IMMUNOGLOBULINS NOS) [Suspect]
     Active Substance: IMMUNE GLOBULIN NOS
     Indication: ENCEPHALITIS AUTOIMMUNE
     Dosage: 70 G EVERY TWO WEEKS FOR FIVE DOSES
     Route: 042
  14. METHYLPREDNISOLONE. [Suspect]
     Active Substance: METHYLPREDNISOLONE
     Indication: ENCEPHALITIS AUTOIMMUNE
     Dosage: 1 G/DAY FOR FIVE DAYS
     Route: 065
  15. METHYLPREDNISOLONE. [Suspect]
     Active Substance: METHYLPREDNISOLONE
     Dosage: 1G DAILY FOR THREE DAYS
     Route: 065
  16. RITUXIMAB. [Suspect]
     Active Substance: RITUXIMAB
     Indication: MALIGNANT CATATONIA

REACTIONS (1)
  - Drug ineffective for unapproved indication [Unknown]
